FAERS Safety Report 16886132 (Version 1)
Quarter: 2019Q4

REPORT INFORMATION
  Report Type: Spontaneous
  Country: TH (occurrence: TH)
  Receive Date: 20191004
  Receipt Date: 20191004
  Transmission Date: 20200122
  Serious: Yes (Life-Threatening, Hospitalization, Disabling, Other)
  Sender: FDA-Public Use
  Company Number: None

PATIENT
  Age: 22 Year
  Sex: Male
  Weight: 60 kg

DRUGS (3)
  1. MINOXIDIL. [Concomitant]
     Active Substance: MINOXIDIL
  2. PROPECIA [Suspect]
     Active Substance: FINASTERIDE
     Indication: ANDROGENETIC ALOPECIA
     Dates: start: 20190906, end: 20190915
  3. BIOTIN [Concomitant]
     Active Substance: BIOTIN

REACTIONS (12)
  - Feeling abnormal [None]
  - Emotional distress [None]
  - Penile vascular disorder [None]
  - Penile pain [None]
  - Wrong technique in product usage process [None]
  - Hypogonadism male [None]
  - Incorrect route of product administration [None]
  - Superficial vein prominence [None]
  - Testicular atrophy [None]
  - Hypotonia [None]
  - Dry skin [None]
  - Erectile dysfunction [None]

NARRATIVE: CASE EVENT DATE: 20190918
